FAERS Safety Report 5098322-7 (Version None)
Quarter: 2006Q3

REPORT INFORMATION
  Report Type: 
  Country: None (occurrence: None)
  Receive Date: 20060906
  Receipt Date: 20060525
  Transmission Date: 20061208
  Serious: No
  Sender: FDA-Public Use
  Company Number: US-GLAXOSMITHKLINE-B0426188A

PATIENT
  Age: 62 Year
  Sex: Female

DRUGS (2)
  1. REQUIP [Suspect]
     Route: 065
  2. LEVODOPA [Suspect]
     Route: 065

REACTIONS (1)
  - OBSESSIVE-COMPULSIVE DISORDER [None]
